FAERS Safety Report 9026112 (Version 1)
Quarter: 2013Q1

REPORT INFORMATION
  Report Type: Spontaneous
  Country: AU (occurrence: AU)
  Receive Date: 20130122
  Receipt Date: 20130122
  Transmission Date: 20140127
  Serious: Yes (Hospitalization)
  Sender: FDA-Public Use
  Company Number: AU-ROCHE-1180889

PATIENT
  Age: 59 Year
  Sex: Male

DRUGS (7)
  1. PEGASYS [Suspect]
     Indication: PRODUCT USED FOR UNKNOWN INDICATION
     Route: 065
     Dates: start: 20120622, end: 20120907
  2. RIBAVIRIN [Suspect]
     Indication: PRODUCT USED FOR UNKNOWN INDICATION
     Route: 048
     Dates: start: 20120803
  3. VICTRELIS [Suspect]
     Indication: PRODUCT USED FOR UNKNOWN INDICATION
     Route: 065
  4. IRBESARTAN [Concomitant]
  5. OXAZEPAM [Concomitant]
  6. QUINAPRIL HYDROCHLORIDE [Concomitant]
  7. VASOCARDOL [Concomitant]

REACTIONS (7)
  - Diarrhoea [Unknown]
  - Urinary retention [Unknown]
  - Activities of daily living impaired [Unknown]
  - Malaise [Unknown]
  - Anaemia [Unknown]
  - Constipation [Unknown]
  - Decreased appetite [Unknown]
